FAERS Safety Report 13187157 (Version 10)
Quarter: 2018Q3

REPORT INFORMATION
  Report Type: Report from Study
  Country: US (occurrence: US)
  Receive Date: 20170206
  Receipt Date: 20180710
  Transmission Date: 20181010
  Serious: Yes (Hospitalization, Other)
  Sender: FDA-Public Use
  Company Number: PHHY2016US181869

PATIENT
  Age: 16 Year
  Sex: Male
  Weight: 50.9 kg

DRUGS (48)
  1. TOBI PODHALER [Suspect]
     Active Substance: TOBRAMYCIN
     Dosage: 112 OT, BID
     Route: 055
     Dates: start: 20160801, end: 20160828
  2. TOBI PODHALER [Suspect]
     Active Substance: TOBRAMYCIN
     Dosage: 112 OT, BID
     Route: 055
     Dates: start: 20161201, end: 20161228
  3. TOBI PODHALER [Suspect]
     Active Substance: TOBRAMYCIN
     Dosage: 112 OT, BID
     Route: 055
     Dates: start: 20170520, end: 20170616
  4. SODIUM CHLORIDE. [Concomitant]
     Active Substance: SODIUM CHLORIDE
     Indication: PROPHYLAXIS
     Dosage: UNK
     Route: 055
     Dates: start: 20130109
  5. GLUCOSE [Concomitant]
     Active Substance: DEXTROSE
     Indication: GLUCOSE TOLERANCE TEST
     Dosage: UNK
     Route: 048
     Dates: start: 20170124, end: 20170124
  6. INFLUENZA VIRUS VACCINE [Concomitant]
     Active Substance: INFLUENZA VIRUS VACCINE
     Dosage: UNK
     Route: 065
     Dates: start: 20161116, end: 20161116
  7. TOBI PODHALER [Suspect]
     Active Substance: TOBRAMYCIN
     Dosage: 112 OT, BID
     Route: 055
     Dates: start: 20170601, end: 20170628
  8. TOBI PODHALER [Suspect]
     Active Substance: TOBRAMYCIN
     Dosage: 112 OT, BID
     Route: 055
     Dates: start: 20170801, end: 20170828
  9. ALBUTEROL. [Concomitant]
     Active Substance: ALBUTEROL
     Dosage: 2.5 MG, QID
     Route: 055
     Dates: start: 20170120, end: 20170127
  10. ORKAMBI [Concomitant]
     Active Substance: IVACAFTOR\LUMACAFTOR
     Dosage: UNK
     Route: 065
     Dates: start: 20161117
  11. PHYTONADIONE. [Concomitant]
     Active Substance: PHYTONADIONE
     Indication: PROPHYLAXIS
     Dosage: UNK
     Route: 065
     Dates: start: 20110630
  12. CYPROHEPTADINE. [Concomitant]
     Active Substance: CYPROHEPTADINE
     Indication: PROPHYLAXIS
     Dosage: UNK
     Route: 065
     Dates: start: 20110630
  13. CREON [Concomitant]
     Active Substance: PANCRELIPASE AMYLASE\PANCRELIPASE LIPASE\PANCRELIPASE PROTEASE
     Indication: PANCREATIC FAILURE
     Dosage: UNK
     Route: 065
     Dates: start: 20130109, end: 20160420
  14. ORKAMBI [Concomitant]
     Active Substance: IVACAFTOR\LUMACAFTOR
     Indication: PROPHYLAXIS
     Dosage: UNK
     Route: 065
     Dates: start: 20160720, end: 20160820
  15. VIOKACE [Concomitant]
     Active Substance: PANCRELIPASE AMYLASE\PANCRELIPASE LIPASE\PANCRELIPASE PROTEASE
     Indication: PANCREATIC FAILURE
     Route: 065
     Dates: start: 20170121
  16. CETRIZINE [Concomitant]
     Active Substance: CETIRIZINE HYDROCHLORIDE
     Indication: PROPHYLAXIS
     Dosage: UNK
     Route: 065
     Dates: start: 20120402
  17. TOBI PODHALER [Suspect]
     Active Substance: TOBRAMYCIN
     Dosage: 112 OT, BID
     Route: 055
     Dates: start: 20170325, end: 20170421
  18. TOBI PODHALER [Suspect]
     Active Substance: TOBRAMYCIN
     Dosage: 112 OT, BID
     Route: 055
     Dates: start: 20170401, end: 20170428
  19. HEPARIN [Concomitant]
     Active Substance: HEPARIN SODIUM
     Indication: PROPHYLAXIS
     Dosage: UNK
     Route: 065
     Dates: start: 20170120, end: 20170127
  20. CARBAMIDE PEROXIDE [Concomitant]
     Active Substance: CARBAMIDE PEROXIDE
     Indication: EXCESSIVE CERUMEN PRODUCTION
     Dosage: UNK
     Route: 065
     Dates: start: 20170123, end: 20170127
  21. DOCUSATE SODIUM. [Concomitant]
     Active Substance: DOCUSATE SODIUM
     Indication: PROPHYLAXIS
     Dosage: UNK
     Route: 065
     Dates: start: 20131109
  22. AQUADEKS [Concomitant]
     Active Substance: MINERALS\VITAMINS
     Indication: PROPHYLAXIS
     Dosage: UNK
     Route: 065
     Dates: start: 20130109, end: 20161114
  23. TOBI PODHALER [Suspect]
     Active Substance: TOBRAMYCIN
     Dosage: 112 OT, BID
     Route: 055
  24. LORAZEPAM. [Concomitant]
     Active Substance: LORAZEPAM
     Indication: PROPHYLAXIS
     Dosage: UNK
     Route: 065
     Dates: start: 20170120, end: 20170120
  25. BACTRIM DS [Concomitant]
     Active Substance: SULFAMETHOXAZOLE\TRIMETHOPRIM
     Indication: PRODUCT USED FOR UNKNOWN INDICATION
     Dosage: UNK (800MG?1600MG)
     Route: 048
     Dates: start: 20170127, end: 20170203
  26. CREON [Concomitant]
     Active Substance: PANCRELIPASE AMYLASE\PANCRELIPASE LIPASE\PANCRELIPASE PROTEASE
     Dosage: UNK
     Route: 065
     Dates: start: 20160707
  27. ALBUTEROL HFA [Concomitant]
     Active Substance: ALBUTEROL SULFATE
     Indication: PROPHYLAXIS
     Dosage: 90 UG, UNK
     Route: 055
     Dates: start: 20110630
  28. INFLUENZA VIRUS VACCINE [Concomitant]
     Active Substance: INFLUENZA VIRUS VACCINE
     Dosage: UNK
     Route: 065
     Dates: start: 20171025, end: 20171025
  29. TOBI PODHALER [Suspect]
     Active Substance: TOBRAMYCIN
     Indication: CYSTIC FIBROSIS
     Dosage: 112 MG, BID (EVERY OTHER 28 DAYS)
     Route: 055
     Dates: start: 20141231
  30. TOBI PODHALER [Suspect]
     Active Substance: TOBRAMYCIN
     Dosage: 112 OT, BID
     Route: 055
     Dates: start: 20160202, end: 20160229
  31. ALBUTEROL. [Concomitant]
     Active Substance: ALBUTEROL
     Indication: BRONCHOSPASM
     Dosage: 2.5 MG, BID
     Route: 055
     Dates: end: 20170119
  32. ALBUTEROL. [Concomitant]
     Active Substance: ALBUTEROL
     Indication: PROPHYLAXIS
     Dosage: 2.5MG/3ML, UNK
     Route: 055
     Dates: start: 20110630
  33. NASONEX [Concomitant]
     Active Substance: MOMETASONE FUROATE
     Indication: PROPHYLAXIS
     Dosage: 50 UG, UNK
     Route: 055
     Dates: start: 20130109
  34. CREON [Concomitant]
     Active Substance: PANCRELIPASE AMYLASE\PANCRELIPASE LIPASE\PANCRELIPASE PROTEASE
     Dosage: UNK
     Route: 065
     Dates: start: 20160420, end: 20160706
  35. TOBI PODHALER [Suspect]
     Active Substance: TOBRAMYCIN
     Dosage: 112 OT, BID
     Route: 055
     Dates: start: 20160402, end: 20160429
  36. TOBI PODHALER [Suspect]
     Active Substance: TOBRAMYCIN
     Dosage: 112 OT, BID
     Route: 055
     Dates: start: 20160601, end: 20160628
  37. TOBI PODHALER [Suspect]
     Active Substance: TOBRAMYCIN
     Dosage: 112 OT, BID
     Route: 055
     Dates: start: 20161001, end: 20161028
  38. TOBI PODHALER [Suspect]
     Active Substance: TOBRAMYCIN
     Dosage: 112 OT, BID
     Route: 055
     Dates: start: 20170201, end: 20170228
  39. MIDAZOLAM [Concomitant]
     Active Substance: MIDAZOLAM HYDROCHLORIDE
     Indication: PROPHYLAXIS
     Dosage: UNK
     Route: 065
     Dates: start: 20170120, end: 20170120
  40. PULMOZYME [Concomitant]
     Active Substance: DORNASE ALFA
     Indication: PROPHYLAXIS
     Dosage: UNK
     Route: 065
     Dates: start: 20110630
  41. MIRALAX [Concomitant]
     Active Substance: POLYETHYLENE GLYCOL 3350
     Indication: CONSTIPATION
     Route: 065
     Dates: start: 20110630
  42. TOBI PODHALER [Suspect]
     Active Substance: TOBRAMYCIN
     Indication: PSEUDOMONAS INFECTION
     Dosage: 112 OT, BID
     Route: 055
     Dates: start: 20151209, end: 20160104
  43. TOBI PODHALER [Suspect]
     Active Substance: TOBRAMYCIN
     Dosage: 112 OT, BID
     Route: 055
     Dates: start: 20170128, end: 20170224
  44. TOBI PODHALER [Suspect]
     Active Substance: TOBRAMYCIN
     Dosage: 112 OT, BID
     Route: 055
     Dates: start: 20171001, end: 20171028
  45. TOBI PODHALER [Suspect]
     Active Substance: TOBRAMYCIN
     Dosage: 112 OT, BID
     Route: 055
     Dates: start: 20171201, end: 20171228
  46. OMEPRAZOLE. [Concomitant]
     Active Substance: OMEPRAZOLE
     Indication: PROPHYLAXIS
     Dosage: UNK
     Route: 065
     Dates: start: 20110630
  47. CHOLECALCIFEROL [Concomitant]
     Active Substance: CHOLECALCIFEROL
     Indication: PROPHYLAXIS
     Dosage: UNK
     Route: 065
     Dates: start: 20140131
  48. INFLUENZA VIRUS VACCINE [Concomitant]
     Active Substance: INFLUENZA VIRUS VACCINE
     Indication: PROPHYLAXIS
     Route: 065
     Dates: start: 20151209, end: 20151209

REACTIONS (11)
  - Infective pulmonary exacerbation of cystic fibrosis [Recovered/Resolved]
  - Blood urea increased [Unknown]
  - Weight increased [Unknown]
  - Pneumonia [Recovered/Resolved]
  - International normalised ratio increased [Unknown]
  - Infective pulmonary exacerbation of cystic fibrosis [Recovered/Resolved]
  - Prothrombin time prolonged [Unknown]
  - Infective pulmonary exacerbation of cystic fibrosis [Recovered/Resolved]
  - Infective pulmonary exacerbation of cystic fibrosis [Recovered/Resolved]
  - Infective pulmonary exacerbation of cystic fibrosis [Recovered/Resolved]
  - Otitis media [Recovered/Resolved]

NARRATIVE: CASE EVENT DATE: 20161116
